FAERS Safety Report 13434787 (Version 1)
Quarter: 2017Q2

REPORT INFORMATION
  Report Type: Spontaneous
  Country: JP (occurrence: JP)
  Receive Date: 20170413
  Receipt Date: 20170413
  Transmission Date: 20170830
  Serious: Yes (Hospitalization)
  Sender: FDA-Public Use
  Company Number: JP-JNJFOC-20170412900

PATIENT
  Age: 79 Year
  Sex: Male
  Weight: 66 kg

DRUGS (11)
  1. MAINTATE [Concomitant]
     Active Substance: BISOPROLOL FUMARATE
     Route: 048
     Dates: start: 20120322
  2. CANAGLU [Suspect]
     Active Substance: CANAGLIFLOZIN
     Indication: TYPE 2 DIABETES MELLITUS
     Route: 048
     Dates: start: 20160331
  3. FAMOTIDINE. [Concomitant]
     Active Substance: FAMOTIDINE
     Indication: PROPHYLAXIS
     Route: 048
     Dates: start: 20120119
  4. MOBIC [Concomitant]
     Active Substance: MELOXICAM
     Indication: PERIARTHRITIS
     Route: 048
     Dates: start: 20161117
  5. TICLOPIDINE HYDROCHLORIDE. [Concomitant]
     Active Substance: TICLOPIDINE HYDROCHLORIDE
     Route: 048
     Dates: start: 20161118
  6. ASPARA POTASSIUM [Concomitant]
     Active Substance: POTASSIUM ASPARTATE
     Dosage: STARTED BEFORE 2009
     Route: 048
  7. LIVALO [Concomitant]
     Active Substance: PITAVASTATIN CALCIUM
     Dosage: STARTED BEFORE 2009
     Route: 048
  8. MICARDIS [Concomitant]
     Active Substance: TELMISARTAN
     Route: 048
     Dates: start: 20160526
  9. CALBLOCK [Concomitant]
     Active Substance: AZELNIDIPINE
     Route: 048
     Dates: start: 20160526
  10. ATELEC [Concomitant]
     Active Substance: CILNIDIPINE
     Route: 048
     Dates: start: 20140612
  11. LUNESTA [Concomitant]
     Active Substance: ESZOPICLONE
     Route: 048
     Dates: start: 20151008

REACTIONS (1)
  - Cerebrovascular disorder [Unknown]

NARRATIVE: CASE EVENT DATE: 20170109
